FAERS Safety Report 8522513-3 (Version None)
Quarter: 2012Q3

REPORT INFORMATION
  Report Type: 
  Country: None (occurrence: None)
  Receive Date: 20120719
  Receipt Date: 20120706
  Transmission Date: 20120928
  Serious: No
  Sender: FDA-Public Use
  Company Number: US-ASTRAZENECA-2012SE46715

PATIENT
  Age: 77 Year
  Sex: Female
  Weight: 81.6 kg

DRUGS (4)
  1. ATENOLOL [Suspect]
     Indication: BLOOD PRESSURE
     Dosage: GENERIC
     Route: 048
  2. AMLODIPINE [Concomitant]
  3. CRESTOR [Suspect]
     Indication: BLOOD CHOLESTEROL INCREASED
     Route: 048
  4. PLAVIX [Concomitant]

REACTIONS (5)
  - PAIN IN EXTREMITY [None]
  - ARTHRALGIA [None]
  - BLOOD PRESSURE ABNORMAL [None]
  - FALL [None]
  - BACK DISORDER [None]
